FAERS Safety Report 17000943 (Version 1)
Quarter: 2019Q4

REPORT INFORMATION
  Report Type: Spontaneous
  Country: US (occurrence: US)
  Receive Date: 20191106
  Receipt Date: 20191106
  Transmission Date: 20200122
  Serious: No
  Sender: FDA-Public Use
  Company Number: US-SA-2019SA302006

PATIENT
  Age: 59 Year
  Sex: Female

DRUGS (4)
  1. DULOXETINE. [Concomitant]
     Active Substance: DULOXETINE
  2. MOMETASONE [Concomitant]
     Active Substance: MOMETASONE
  3. METHIMAZOLE. [Concomitant]
     Active Substance: METHIMAZOLE
  4. DUPIXENT [Suspect]
     Active Substance: DUPILUMAB
     Indication: DERMATITIS ATOPIC
     Dosage: UNK
     Route: 058

REACTIONS (1)
  - Therapeutic response shortened [Unknown]
